FAERS Safety Report 20171117 (Version 3)
Quarter: 2023Q1

REPORT INFORMATION
  Report Type: Report from Study
  Country: DO (occurrence: DO)
  Receive Date: 20211210
  Receipt Date: 20230304
  Transmission Date: 20230418
  Serious: Yes (Hospitalization, Other)
  Sender: FDA-Public Use
  Company Number: DO-ABBVIE-21K-279-4193867-00

PATIENT
  Age: 67 Year
  Sex: Female
  Weight: 65 kg

DRUGS (5)
  1. HUMIRA [Suspect]
     Active Substance: ADALIMUMAB
     Indication: Rheumatoid arthritis
     Dosage: FORM STRENGTH 40
     Route: 058
     Dates: start: 20120506, end: 20221010
  2. PREDNISOLONE [Concomitant]
     Active Substance: PREDNISOLONE
     Indication: Rheumatoid arthritis
  3. METHOTREXATE [Concomitant]
     Active Substance: METHOTREXATE
     Indication: Rheumatoid arthritis
  4. METHOTREXATE [Concomitant]
     Active Substance: METHOTREXATE
     Indication: Rheumatoid arthritis
  5. FOLIC ACID [Concomitant]
     Active Substance: FOLIC ACID
     Indication: Rheumatoid arthritis
     Route: 048

REACTIONS (17)
  - Pulmonary congestion [Recovering/Resolving]
  - Cystitis [Recovering/Resolving]
  - Amnesia [Recovering/Resolving]
  - Pulmonary oedema [Recovering/Resolving]
  - Joint warmth [Recovering/Resolving]
  - Diabetes mellitus [Recovering/Resolving]
  - Discomfort [Recovering/Resolving]
  - Skin burning sensation [Recovering/Resolving]
  - Pulmonary congestion [Recovered/Resolved]
  - Fall [Recovering/Resolving]
  - Arthritis [Recovering/Resolving]
  - Feeling abnormal [Recovering/Resolving]
  - Furuncle [Recovering/Resolving]
  - Pneumonia [Recovering/Resolving]
  - Arthralgia [Recovering/Resolving]
  - Feeling cold [Recovering/Resolving]
  - Rheumatoid arthritis [Not Recovered/Not Resolved]

NARRATIVE: CASE EVENT DATE: 20210701
